FAERS Safety Report 8605298-1 (Version None)
Quarter: 2012Q3

REPORT INFORMATION
  Report Type: 
  Country: None (occurrence: None)
  Receive Date: 20120820
  Receipt Date: 20120809
  Transmission Date: 20120928
  Serious: Yes (Hospitalization)
  Sender: FDA-Public Use
  Company Number: US-BAYER-200938772NA

PATIENT
  Age: 39 Year
  Sex: Female
  Weight: 56.689 kg

DRUGS (6)
  1. YASMIN [Suspect]
     Dosage: UNK
     Dates: start: 20030801, end: 20040501
  2. XANAX [Concomitant]
  3. ZOLOFT [Concomitant]
  4. VITAMIN TAB [Concomitant]
  5. TRAMADOL HCL [Concomitant]
     Dosage: 20 MG, UNK
     Route: 048
     Dates: start: 20040417
  6. NEURONTIN [Concomitant]

REACTIONS (9)
  - DYSARTHRIA [None]
  - TRANSIENT ISCHAEMIC ATTACK [None]
  - CEREBROVASCULAR ACCIDENT [None]
  - ISCHAEMIC CEREBRAL INFARCTION [None]
  - HEADACHE [None]
  - NEUROLOGICAL SYMPTOM [None]
  - MIGRAINE [None]
  - MOBILITY DECREASED [None]
  - THROMBOSIS [None]
